FAERS Safety Report 8547438-9 (Version None)
Quarter: 2012Q3

REPORT INFORMATION
  Report Type: 
  Country: None (occurrence: None)
  Receive Date: 20120727
  Receipt Date: 20120416
  Transmission Date: 20120928
  Serious: No
  Sender: FDA-Public Use
  Company Number: US-ASTRAZENECA-2012SE24890

PATIENT
  Sex: Female

DRUGS (8)
  1. LISINOPRIL [Suspect]
     Route: 048
  2. ULTRAM [Concomitant]
  3. CELEXA [Concomitant]
  4. SEROQUEL [Suspect]
     Route: 048
  5. NEURONTIN [Suspect]
  6. XANAX [Concomitant]
  7. HUMULIN 70/30 [Concomitant]
  8. SYNTHROID [Concomitant]

REACTIONS (3)
  - DIABETES MELLITUS [None]
  - NEUROPATHY PERIPHERAL [None]
  - DRUG HYPERSENSITIVITY [None]
